FAERS Safety Report 17950161 (Version 2)
Quarter: 2020Q3

REPORT INFORMATION
  Report Type: Report from Study
  Country: DK (occurrence: DK)
  Receive Date: 20200626
  Receipt Date: 20200702
  Transmission Date: 20201103
  Serious: Yes (Congenital Anomaly, Other)
  Sender: FDA-Public Use
  Company Number: DK-JNJFOC-20200630239

PATIENT

DRUGS (1)
  1. CETIRIZINE HYDROCHLORIDE. [Suspect]
     Active Substance: CETIRIZINE HYDROCHLORIDE
     Indication: PRODUCT USED FOR UNKNOWN INDICATION
     Dosage: UNK
     Route: 064

REACTIONS (13)
  - Congenital genital malformation [Unknown]
  - Maternal exposure during pregnancy [Unknown]
  - Heart disease congenital [Unknown]
  - Congenital intestinal malformation [Unknown]
  - Small for dates baby [Unknown]
  - Respiratory tract malformation [Unknown]
  - Congenital musculoskeletal anomaly [Unknown]
  - Congenital eye disorder [Unknown]
  - Limb malformation [Unknown]
  - Urinary tract malformation [Unknown]
  - Congenital anomaly [Unknown]
  - Congenital neurological disorder [Unknown]
  - Premature baby [Unknown]
